FAERS Safety Report 25391598 (Version 1)
Quarter: 2025Q2

REPORT INFORMATION
  Report Type: Spontaneous
  Country: US (occurrence: US)
  Receive Date: 20250603
  Receipt Date: 20250603
  Transmission Date: 20250717
  Serious: Yes (Other)
  Sender: AZURITY PHARMACEUTICALS
  Company Number: US-AZURITY PHARMACEUTICALS, INC.-AZR202505-001509

PATIENT
  Sex: Female

DRUGS (5)
  1. QBRELIS [Suspect]
     Active Substance: LISINOPRIL
     Indication: Blood pressure abnormal
     Route: 048
     Dates: start: 20240228
  2. QBRELIS [Suspect]
     Active Substance: LISINOPRIL
     Route: 048
     Dates: start: 20250102
  3. QBRELIS [Suspect]
     Active Substance: LISINOPRIL
     Route: 048
     Dates: start: 2025
  4. ATORVALIQ [Concomitant]
     Active Substance: ATORVASTATIN CALCIUM TRIHYDRATE
     Indication: Product used for unknown indication
     Route: 048
  5. GABAPENTIN [Concomitant]
     Active Substance: GABAPENTIN
     Indication: Product used for unknown indication
     Route: 065

REACTIONS (4)
  - Peripheral swelling [Recovering/Resolving]
  - Skin exfoliation [Recovering/Resolving]
  - Rheumatoid arthritis [Unknown]
  - Dermatitis exfoliative [Unknown]

NARRATIVE: CASE EVENT DATE: 20250101
